FAERS Safety Report 5295449-1 (Version None)
Quarter: 2007Q2

REPORT INFORMATION
  Report Type: 
  Country: None (occurrence: None)
  Receive Date: 20070406
  Receipt Date: 20070327
  Transmission Date: 20071010
  Serious: Yes (Other)
  Sender: FDA-Public Use
  Company Number: 2007US000682

PATIENT
  Age: 5 Year
  Sex: Female

DRUGS (1)
  1. PROTOPIC [Suspect]
     Indication: ECZEMA
     Dosage: PRN, TOPICAL
     Route: 061
     Dates: start: 19990101

REACTIONS (4)
  - ALOPECIA [None]
  - GROIN PAIN [None]
  - LEUKAEMIA [None]
  - PAIN IN EXTREMITY [None]
